FAERS Safety Report 4964555-0 (Version None)
Quarter: 2006Q2

REPORT INFORMATION
  Report Type: 
  Country: None (occurrence: None)
  Receive Date: 20060406
  Receipt Date: 20060330
  Transmission Date: 20061013
  Serious: Yes (Hospitalization)
  Sender: FDA-Public Use
  Company Number: FR-GLAXOSMITHKLINE-B0418775A

PATIENT
  Age: 38 Year
  Sex: Male
  Weight: 54 kg

DRUGS (11)
  1. ZOPHREN [Suspect]
     Route: 065
  2. LAROXYL [Suspect]
     Route: 065
  3. MOPRAL [Suspect]
     Route: 065
  4. PARACETAMOL [Suspect]
     Route: 065
  5. TAXOTERE [Suspect]
     Route: 042
     Dates: start: 20060223
  6. OXYCONTIN [Suspect]
     Route: 048
  7. STILNOX [Concomitant]
     Route: 048
  8. FORLAX [Concomitant]
     Route: 065
  9. RIVOTRIL [Concomitant]
     Route: 065
  10. SOLU-MEDROL [Concomitant]
     Dosage: 60MG SINGLE DOSE
     Route: 042
  11. RADIOTHERAPY [Concomitant]

REACTIONS (7)
  - BODY TEMPERATURE DECREASED [None]
  - CHILLS [None]
  - FEELING HOT [None]
  - HEART RATE INCREASED [None]
  - HYPERHIDROSIS [None]
  - OXYGEN SATURATION DECREASED [None]
  - PALLOR [None]
